FAERS Safety Report 15509058 (Version 1)
Quarter: 2018Q4

REPORT INFORMATION
  Report Type: Report from Study
  Country: US (occurrence: US)
  Receive Date: 20181016
  Receipt Date: 20181016
  Transmission Date: 20190205
  Serious: No
  Sender: FDA-Public Use
  Company Number: US-AMGEN-USASL2018136970

PATIENT
  Age: 71 Year
  Sex: Female
  Weight: 88.89 kg

DRUGS (5)
  1. BONIVA [Concomitant]
     Active Substance: IBANDRONATE SODIUM
     Dosage: UNK UNK, QWK
  2. PROLIA [Suspect]
     Active Substance: DENOSUMAB
     Indication: GASTROOESOPHAGEAL REFLUX DISEASE
  3. PROLIA [Suspect]
     Active Substance: DENOSUMAB
     Indication: CLAVICLE FRACTURE
  4. PROLIA [Suspect]
     Active Substance: DENOSUMAB
     Indication: OSTEOPOROTIC FRACTURE
     Dosage: 60 MG, Q6MO
     Route: 058
  5. VITAMIN D [Concomitant]
     Active Substance: CHOLECALCIFEROL
     Dosage: 1000 UNIT, QD

REACTIONS (1)
  - Off label use [Unknown]
